FAERS Safety Report 4988464-6 (Version None)
Quarter: 2006Q2

REPORT INFORMATION
  Report Type: 
  Country: None (occurrence: None)
  Receive Date: 20060426
  Receipt Date: 20060417
  Transmission Date: 20061013
  Serious: Yes (Other)
  Sender: FDA-Public Use
  Company Number: 2006051749

PATIENT
  Sex: Male

DRUGS (1)
  1. SUDAFED 12 HOUR [Suspect]

REACTIONS (1)
  - DRUG DEPENDENCE [None]
